FAERS Safety Report 10373675 (Version 1)
Quarter: 2014Q1

REPORT INFORMATION
  Report Type: Spontaneous
  Country: US (occurrence: None)
  Receive Date: 20140306
  Receipt Date: 20140306
  Transmission Date: 20141002
  Serious: Yes (Other)
  Sender: FDA-Public Use
  Company Number: 163-21880-13093698

PATIENT
  Age: 77 Year
  Sex: Female

DRUGS (4)
  1. REVLIMID (LENALIDOMIDE) (5 MILLIGRAM, CAPSULES) [Suspect]
     Indication: MYELODYSPLASTIC SYNDROME
     Route: 048
     Dates: start: 20130516
  2. MULTIVITAMINS (CHEWABLE TABLET) [Concomitant]
  3. ASA (ACETYLSALICYLIC) (ENTERIC-COATED TABLET) [Concomitant]
  4. EXJADE (DEFERASIROX) (TABLETS) [Concomitant]

REACTIONS (3)
  - Sepsis [None]
  - Dry skin [None]
  - Infection [None]
